FAERS Safety Report 6553896-1 (Version None)
Quarter: 2010Q1

REPORT INFORMATION
  Report Type: 
  Country: None (occurrence: None)
  Receive Date: 20100125
  Receipt Date: 20100125
  Transmission Date: 20100710
  Serious: Yes (Life-Threatening)
  Sender: FDA-Public Use
  Company Number: None

PATIENT
  Age: 19 Year
  Sex: Male
  Weight: 99.7913 kg

DRUGS (1)
  1. PROAIR HFA [Suspect]
     Dosage: 2 ACTUATIONS AS NEEDED OTHER
     Route: 050
     Dates: start: 19990101, end: 20100123

REACTIONS (4)
  - CHOKING SENSATION [None]
  - FOREIGN BODY [None]
  - MEDICATION ERROR [None]
  - PRODUCT CONTAINER SEAL ISSUE [None]
